FAERS Safety Report 4850280-3 (Version None)
Quarter: 2005Q4

REPORT INFORMATION
  Report Type: 
  Country: None (occurrence: None)
  Receive Date: 20051123
  Receipt Date: 20050922
  Transmission Date: 20060501
  Serious: No
  Sender: FDA-Public Use
  Company Number: TPA2005A01099

PATIENT
  Age: 69 Year
  Sex: Male
  Weight: 77.5651 kg

DRUGS (6)
  1. ROZEREM [Suspect]
     Dosage: 8 MG, HS, PER ORAL
     Route: 048
     Dates: start: 20050921
  2. HYOSCYAMINE (HYOSCYAMINE) [Concomitant]
  3. LISINOPRIL [Concomitant]
  4. TRAVOPROST 0.004% (TRAVOPROST) [Concomitant]
  5. TIMOLOL 0.25% (TIMOLOL) [Concomitant]
  6. ATORVASTATIN CALCIUM [Concomitant]

REACTIONS (1)
  - DRUG INEFFECTIVE [None]
